FAERS Safety Report 23280879 (Version 2)
Quarter: 2024Q1

REPORT INFORMATION
  Report Type: Spontaneous
  Country: US (occurrence: US)
  Receive Date: 20231211
  Receipt Date: 20240320
  Transmission Date: 20240409
  Serious: No
  Sender: FDA-Public Use
  Company Number: US-NOVEN PHARMACEUTICALS, INC.-2023-NOV-US000007

PATIENT
  Sex: Female

DRUGS (4)
  1. ESTRADIOL [Suspect]
     Active Substance: ESTRADIOL
     Indication: Hormone replacement therapy
     Dosage: 0.025 MG, UNKNOWN
     Route: 062
  2. ESTRADIOL [Suspect]
     Active Substance: ESTRADIOL
     Dosage: 0.025 MG, UNKNOWN
     Route: 062
  3. PROGESTERONE [Concomitant]
     Active Substance: PROGESTERONE
     Indication: Product used for unknown indication
     Dosage: 100 MG, DAILY
     Route: 048
  4. TESTOSTERONE [Concomitant]
     Active Substance: TESTOSTERONE
     Indication: Product used for unknown indication
     Dosage: UNKNOWN, DAILY
     Route: 065

REACTIONS (5)
  - Vaginal haemorrhage [Recovered/Resolved]
  - Adhesive tape use [Recovered/Resolved]
  - Wrong technique in product usage process [Recovered/Resolved]
  - Product adhesion issue [Not Recovered/Not Resolved]
  - Device issue [Not Recovered/Not Resolved]
